FAERS Safety Report 8035564-2 (Version None)
Quarter: 2012Q1

REPORT INFORMATION
  Report Type: 
  Country: None (occurrence: None)
  Receive Date: 20120111
  Receipt Date: 20120105
  Transmission Date: 20120608
  Serious: Yes (Hospitalization)
  Sender: FDA-Public Use
  Company Number: US-JNJFOC-20110811666

PATIENT
  Sex: Female
  Weight: 71.67 kg

DRUGS (2)
  1. REMICADE [Suspect]
     Indication: CROHN'S DISEASE
     Route: 042
     Dates: start: 20101001, end: 20110301
  2. REMICADE [Suspect]
     Route: 042
     Dates: start: 20111101

REACTIONS (7)
  - MUSCLE SPASMS [None]
  - ABDOMINAL PAIN UPPER [None]
  - HEADACHE [None]
  - MESENTERITIS [None]
  - INTESTINAL STENOSIS [None]
  - RASH [None]
  - ADVERSE EVENT [None]
